FAERS Safety Report 18355146 (Version 2)
Quarter: 2020Q4

REPORT INFORMATION
  Report Type: Spontaneous
  Country: US (occurrence: US)
  Receive Date: 20201007
  Receipt Date: 20201012
  Transmission Date: 20210114
  Serious: Yes (Hospitalization, Other)
  Sender: FDA-Public Use
  Company Number: US-PFIZER INC-2020385648

PATIENT
  Age: 57 Year
  Sex: Female
  Weight: 72.57 kg

DRUGS (5)
  1. CARVEDILOL. [Concomitant]
     Active Substance: CARVEDILOL
     Indication: HYPERTENSION
     Dosage: 3.125 MG, 2X/DAY
     Dates: start: 20180831
  2. CHANTIX [Suspect]
     Active Substance: VARENICLINE TARTRATE
     Dosage: UNK
     Dates: start: 201905
  3. PRASUGREL. [Concomitant]
     Active Substance: PRASUGREL
     Indication: ANTICOAGULANT THERAPY
     Dosage: 10 MG
     Dates: start: 20180831
  4. CHANTIX [Suspect]
     Active Substance: VARENICLINE TARTRATE
     Indication: SMOKING CESSATION THERAPY
     Dosage: 1 MG, 2X/DAY (ONE BLUE TABLET IN THE MORNING AND ONE BLUE TABLET AT NIGHT)
     Route: 048
     Dates: start: 2005
  5. CHANTIX [Suspect]
     Active Substance: VARENICLINE TARTRATE
     Dosage: UNK
     Dates: start: 2010

REACTIONS (3)
  - Coronary artery disease [Unknown]
  - Myocardial infarction [Recovered/Resolved with Sequelae]
  - Cardiac dysfunction [Unknown]

NARRATIVE: CASE EVENT DATE: 20180822
